FAERS Safety Report 5718668-6 (Version None)
Quarter: 2008Q2

REPORT INFORMATION
  Report Type: 
  Country: None (occurrence: None)
  Receive Date: 20080425
  Receipt Date: 20080407
  Transmission Date: 20081010
  Serious: Yes (Hospitalization, Other)
  Sender: FDA-Public Use
  Company Number: AU-NOVOPROD-270943

PATIENT
  Sex: Male
  Weight: 92.9 kg

DRUGS (10)
  1. NOVOLOG MIX 70/30 [Suspect]
     Indication: DIABETES MELLITUS
     Dosage: 72 IU, QD
  2. NOVOLOG MIX 70/30 [Suspect]
     Dosage: 24+20+50 IU, QD
     Dates: start: 20080106
  3. NOVOLOG MIX 70/30 [Suspect]
     Dosage: 36 + 36+ 60
  4. ACTOS [Concomitant]
     Dosage: 30 MG, QD
  5. CADUET [Concomitant]
     Dosage: 1 TAB, QD
  6. DBL ASPIRIN [Concomitant]
     Dosage: 100 MG, QD
  7. LISINOPRIL [Concomitant]
     Dosage: 20 MG, BID
  8. VITAMIN D3 [Concomitant]
     Dosage: 2000 IU, UNK
  9. ZOLOFT [Concomitant]
  10. AMLOPINE [Concomitant]

REACTIONS (4)
  - BLOOD GLUCOSE INCREASED [None]
  - CONDITION AGGRAVATED [None]
  - MUSCULOSKELETAL PAIN [None]
  - VISION BLURRED [None]
